FAERS Safety Report 17182783 (Version 1)
Quarter: 2019Q4

REPORT INFORMATION
  Report Type: Spontaneous
  Country: FR (occurrence: FR)
  Receive Date: 20191220
  Receipt Date: 20191220
  Transmission Date: 20200122
  Serious: Yes (Hospitalization)
  Sender: FDA-Public Use
  Company Number: FR-TEVA-2019-FR-1153862

PATIENT
  Age: 78 Year
  Sex: Female
  Weight: 59 kg

DRUGS (4)
  1. AMOXICILLINE BASE [Suspect]
     Active Substance: AMOXICILLIN
     Indication: PNEUMONIA
     Dosage: NP
     Route: 048
     Dates: start: 20191021
  2. CEFOTAXIME [Interacting]
     Active Substance: CEFOTAXIME SODIUM
     Indication: PNEUMONIA
     Route: 042
     Dates: start: 20191025, end: 20191030
  3. PREVISCAN 20 MG, COMPRIM? S?CABLE [Interacting]
     Active Substance: FLUINDIONE
     Indication: MITRAL VALVE REPLACEMENT
     Dosage: 15 MILLIGRAM
     Route: 048
     Dates: start: 200704, end: 20191025
  4. ROVAMYCINE 1 500 000 UI, COMPRIM? PELLICUL? [Interacting]
     Active Substance: SPIRAMYCIN
     Indication: PNEUMONIA
     Route: 048
     Dates: start: 20191025, end: 20191030

REACTIONS (4)
  - Accidental overdose [Recovered/Resolved]
  - Drug interaction [Recovered/Resolved]
  - International normalised ratio increased [Recovered/Resolved]
  - Anaemia [Recovered/Resolved]

NARRATIVE: CASE EVENT DATE: 20191025
